FAERS Safety Report 25815474 (Version 1)
Quarter: 2025Q3

REPORT INFORMATION
  Report Type: Spontaneous
  Country: US (occurrence: US)
  Receive Date: 20250918
  Receipt Date: 20250918
  Transmission Date: 20251021
  Serious: Yes (Other)
  Sender: COOPERSURGICAL
  Company Number: US-COOPERSURGICAL, INC.-2024CPS004134

PATIENT
  Age: 26 Year
  Sex: Female
  Weight: 56.689 kg

DRUGS (1)
  1. PARAGARD T 380A [Suspect]
     Active Substance: COPPER
     Indication: Contraception
     Route: 015
     Dates: start: 20140709

REACTIONS (14)
  - Surgery [Recovered/Resolved]
  - Device breakage [Recovered/Resolved]
  - Foreign body in reproductive tract [Recovered/Resolved]
  - Complication of device removal [Recovered/Resolved]
  - Embedded device [Recovered/Resolved]
  - Anxiety [Unknown]
  - Depression [Unknown]
  - Iron deficiency anaemia [Unknown]
  - Premenstrual syndrome [Recovered/Resolved]
  - Pain [Not Recovered/Not Resolved]
  - Muscle spasms [Unknown]
  - Abnormal uterine bleeding [Unknown]
  - Intermenstrual bleeding [Unknown]
  - Menstruation irregular [Unknown]

NARRATIVE: CASE EVENT DATE: 20140730
